FAERS Safety Report 8472125-5 (Version None)
Quarter: 2012Q2

REPORT INFORMATION
  Report Type: 
  Country: None (occurrence: None)
  Receive Date: 20120627
  Receipt Date: 20120510
  Transmission Date: 20120825
  Serious: Yes (Hospitalization)
  Sender: FDA-Public Use
  Company Number: GB-ABBOTT-12P-167-0934551-00

PATIENT
  Age: 57 Year
  Sex: Female

DRUGS (18)
  1. ISOSORBID MONONITRATE [Concomitant]
     Indication: MYOCARDIAL ISCHAEMIA
     Dates: start: 19980101
  2. OILATUM EMOLLIENT [Concomitant]
     Indication: ECZEMA
     Dates: start: 20000101
  3. ASPIRIN [Concomitant]
     Indication: ANGINA PECTORIS
     Dates: start: 19980101
  4. BENDROFLUMETHIAZIDE [Concomitant]
     Indication: HYPERTENSION
     Dates: start: 19800101
  5. LORATADINE [Concomitant]
     Indication: ECZEMA
     Dates: start: 20000101
  6. METFORMIN HCL [Concomitant]
     Indication: DIABETES MELLITUS
     Dates: start: 20060101
  7. RABEPRAZOLE SODIUM [Concomitant]
     Indication: GASTRIC ULCER
     Dates: start: 19800101
  8. BENDROFLUMETHIAZIDE [Concomitant]
     Indication: OEDEMA
  9. CLARITHROMYCIN [Concomitant]
     Indication: ABDOMINAL PAIN
     Dates: start: 20120508
  10. COLPERMIN [Concomitant]
     Indication: ABDOMINAL PAIN
     Dates: start: 20100101
  11. BUDESONIDE [Concomitant]
     Indication: ASTHMA
  12. KETOCONAZOLE [Concomitant]
     Indication: ECZEMA
     Dosage: SHAMPOO
     Route: 050
     Dates: start: 20000101
  13. PREGABALIN [Concomitant]
     Indication: NERVOUS SYSTEM DISORDER
     Dates: start: 20100101
  14. NITROGLYCERIN [Concomitant]
     Indication: ANGINA PECTORIS
     Dates: start: 19980101
  15. HUMIRA [Suspect]
     Indication: RHEUMATOID ARTHRITIS
     Route: 058
     Dates: start: 20120214, end: 20120419
  16. LEVOTHYROXINE SODIUM [Concomitant]
     Indication: HYPOTHYROIDISM
     Dates: start: 20030101
  17. RAMIPRIL [Concomitant]
     Indication: HYPERTENSION
     Dates: start: 20120101
  18. ROSUVASTATIN [Concomitant]
     Indication: BLOOD CHOLESTEROL INCREASED
     Dates: start: 20000101

REACTIONS (4)
  - ABDOMINAL DISTENSION [None]
  - ABDOMINAL PAIN [None]
  - VOMITING [None]
  - DIZZINESS [None]
